FAERS Safety Report 20310043 (Version 1)
Quarter: 2022Q1

REPORT INFORMATION
  Report Type: Spontaneous
  Country: US (occurrence: US)
  Receive Date: 20220107
  Receipt Date: 20220107
  Transmission Date: 20220424
  Serious: No
  Sender: FDA-Public Use
  Company Number: US-ALKERMES INC.-ALK-2022-000041

PATIENT
  Sex: Female

DRUGS (3)
  1. LYBALVI [Suspect]
     Active Substance: OLANZAPINE\SAMIDORPHAN L-MALATE
     Indication: Bipolar disorder
     Dosage: 5/10 MILLIGRAM, QD
     Route: 048
     Dates: start: 202112, end: 202112
  2. ZYPREXA [Concomitant]
     Active Substance: OLANZAPINE
     Indication: Bipolar disorder
     Dosage: 5 MILLIGRAM
     Route: 065
  3. ZYPREXA [Concomitant]
     Active Substance: OLANZAPINE
     Dosage: 5 MILLIGRAM
     Route: 065
     Dates: start: 2021, end: 2021

REACTIONS (1)
  - Feeling abnormal [Recovering/Resolving]
